FAERS Safety Report 4504715-6 (Version None)
Quarter: 2004Q4

REPORT INFORMATION
  Report Type: 
  Country: None (occurrence: None)
  Receive Date: 20041118
  Receipt Date: 20041110
  Transmission Date: 20050328
  Serious: Yes (Other)
  Sender: FDA-Public Use
  Company Number: ZA-MERCK-0411ZAF00014

PATIENT
  Age: 55 Year
  Sex: Female

DRUGS (1)
  1. FOSAMAX [Suspect]
     Indication: OSTEOPOROSIS
     Route: 048
     Dates: start: 20040801

REACTIONS (1)
  - LIPOMATOSIS [None]
